FAERS Safety Report 25499541 (Version 2)
Quarter: 2025Q3

REPORT INFORMATION
  Report Type: Spontaneous
  Country: US (occurrence: US)
  Receive Date: 20250701
  Receipt Date: 20250710
  Transmission Date: 20251021
  Serious: No
  Sender: VERTEX
  Company Number: US-VERTEX PHARMACEUTICALS-2025-010253

PATIENT
  Sex: Female

DRUGS (2)
  1. JOURNAVX [Suspect]
     Active Substance: SUZETRIGINE
     Indication: Pain
     Dosage: 100 MG, SINGLE (LOADING DOSE)
     Route: 048
  2. JOURNAVX [Suspect]
     Active Substance: SUZETRIGINE
     Dosage: 50 MG, BID (EVERY 12 HOURS)
     Route: 048

REACTIONS (1)
  - Cognitive disorder [Recovered/Resolved]
